FAERS Safety Report 5413750-5 (Version None)
Quarter: 2007Q3

REPORT INFORMATION
  Report Type: 
  Country: None (occurrence: None)
  Receive Date: 20070814
  Receipt Date: 20070709
  Transmission Date: 20080115
  Serious: Yes (Hospitalization)
  Sender: FDA-Public Use
  Company Number: ZA-BRISTOL-MYERS SQUIBB COMPANY-13874425

PATIENT
  Age: 10 Year
  Sex: Female

DRUGS (3)
  1. EFAVIRENZ [Suspect]
     Indication: HIV INFECTION
  2. CLARITHROMYCIN [Concomitant]
  3. AZITHROMYCIN [Concomitant]

REACTIONS (1)
  - PALATAL DISORDER [None]
